FAERS Safety Report 10917426 (Version 2)
Quarter: 2015Q3

REPORT INFORMATION
  Report Type: Spontaneous
  Country: US (occurrence: US)
  Receive Date: 20150316
  Receipt Date: 20150710
  Transmission Date: 20151125
  Serious: No
  Sender: FDA-Public Use
  Company Number: US-009507513-1503USA004039

PATIENT
  Age: 72 Year
  Sex: Female
  Weight: 83 kg

DRUGS (1)
  1. GRASTEK [Suspect]
     Active Substance: PHLEUM PRATENSE POLLEN
     Indication: SEASONAL ALLERGY
     Dosage: 2800 BAU, QD
     Route: 060
     Dates: start: 20150302, end: 20150303

REACTIONS (8)
  - Discomfort [Recovered/Resolved]
  - Headache [Recovered/Resolved]
  - Feeling abnormal [Unknown]
  - Sinusitis [Recovered/Resolved]
  - Pain [Recovered/Resolved]
  - Swelling [Unknown]
  - Vision blurred [Recovered/Resolved]
  - Fatigue [Recovered/Resolved]

NARRATIVE: CASE EVENT DATE: 20150303
